FAERS Safety Report 14081254 (Version 2)
Quarter: 2017Q4

REPORT INFORMATION
  Report Type: Report from Study
  Country: US (occurrence: US)
  Receive Date: 20171012
  Receipt Date: 20171018
  Transmission Date: 20180321
  Serious: Yes (Other)
  Sender: FDA-Public Use
  Company Number: US-SA-2016SA175476

PATIENT
  Age: 30 Year
  Sex: Female

DRUGS (1)
  1. LEMTRADA [Suspect]
     Active Substance: ALEMTUZUMAB
     Indication: MULTIPLE SCLEROSIS
     Route: 041
     Dates: start: 20160912, end: 20160916

REACTIONS (12)
  - Pyrexia [Unknown]
  - Laboratory test abnormal [Unknown]
  - Streptococcal urinary tract infection [Unknown]
  - Asthenia [Recovered/Resolved]
  - Oropharyngeal pain [Not Recovered/Not Resolved]
  - Pain [Recovered/Resolved]
  - Rash generalised [Recovered/Resolved]
  - Platelet count increased [Not Recovered/Not Resolved]
  - Fatigue [Recovered/Resolved]
  - Sinusitis [Recovered/Resolved]
  - Pyrexia [Not Recovered/Not Resolved]
  - Uterine leiomyoma [Not Recovered/Not Resolved]

NARRATIVE: CASE EVENT DATE: 2016
